FAERS Safety Report 4710845-6 (Version None)
Quarter: 2005Q3

REPORT INFORMATION
  Report Type: 
  Country: None (occurrence: None)
  Receive Date: 20050706
  Receipt Date: 20050706
  Transmission Date: 20060218
  Serious: No
  Sender: FDA-Public Use
  Company Number: None

PATIENT
  Age: 5 Year
  Sex: Female
  Weight: 21.7727 kg

DRUGS (1)
  1. CIPRO [Suspect]
     Indication: CONJUNCTIVITIS INFECTIVE

REACTIONS (4)
  - APPLICATION SITE REACTION [None]
  - BURNING SENSATION [None]
  - PAIN [None]
  - PHOTOPHOBIA [None]
